FAERS Safety Report 12811005 (Version 2)
Quarter: 2016Q4

REPORT INFORMATION
  Report Type: Spontaneous
  Country: SK (occurrence: SK)
  Receive Date: 20161005
  Receipt Date: 20161107
  Transmission Date: 20170207
  Serious: Yes (Other)
  Sender: FDA-Public Use
  Company Number: SK-PFIZER INC-2016446278

PATIENT
  Age: 61 Year
  Sex: Male

DRUGS (9)
  1. FURON /00032601/ [Concomitant]
     Active Substance: FUROSEMIDE
     Dosage: 40 MG, UNK
     Dates: start: 20160913
  2. XALKORI [Suspect]
     Active Substance: CRIZOTINIB
     Dosage: 1 TABLET DAILY
     Route: 048
     Dates: start: 20160922
  3. ELIQUIS [Concomitant]
     Active Substance: APIXABAN
     Dosage: 5 MG, UNK
     Dates: start: 20160913
  4. AVAMYS [Concomitant]
     Active Substance: FLUTICASONE FUROATE
     Dosage: UNK
  5. PRENESSA [Concomitant]
     Active Substance: PERINDOPRIL
     Dosage: 4 MG, UNK
     Dates: start: 20160913
  6. AFONIL [Concomitant]
     Dosage: UNK
  7. FAMOSAN [Concomitant]
     Dosage: UNK
  8. XALKORI [Suspect]
     Active Substance: CRIZOTINIB
     Indication: NON-SMALL CELL LUNG CANCER
     Dosage: 2X1 TABLETS DAILY
     Route: 048
     Dates: start: 20151207, end: 20160823
  9. CARVEDILOL. [Concomitant]
     Active Substance: CARVEDILOL
     Dosage: 5.25 MG, UNK
     Dates: start: 20160913

REACTIONS (2)
  - Oedema peripheral [Unknown]
  - Atrial fibrillation [Unknown]

NARRATIVE: CASE EVENT DATE: 20160823
